FAERS Safety Report 10873763 (Version 2)
Quarter: 2015Q1

REPORT INFORMATION
  Report Type: Report from Study
  Country: US (occurrence: US)
  Receive Date: 20150227
  Receipt Date: 20150325
  Transmission Date: 20150721
  Serious: Yes (Hospitalization)
  Sender: FDA-Public Use
  Company Number: US-ALEXION PHARMACEUTICALS INC.-A201500587

PATIENT
  Age: 72 Year
  Sex: Female
  Weight: 88.3 kg

DRUGS (35)
  1. ECULIZUMAB [Suspect]
     Active Substance: ECULIZUMAB
     Dosage: 900 MG, SINGLE
     Route: 042
     Dates: start: 20130320, end: 20130320
  2. ECULIZUMAB [Suspect]
     Active Substance: ECULIZUMAB
     Dosage: 900 MG, SINGLE
     Route: 042
     Dates: start: 20130326, end: 20130326
  3. ECULIZUMAB [Suspect]
     Active Substance: ECULIZUMAB
     Dosage: 1200 MG, SINGLE
     Route: 042
     Dates: start: 20130508, end: 20130508
  4. MOXIFLOXACIN [Concomitant]
     Active Substance: MOXIFLOXACIN
  5. PREDNISONE. [Concomitant]
     Active Substance: PREDNISONE
  6. ATORVASTATIN [Concomitant]
     Active Substance: ATORVASTATIN
  7. NITRO-DUR [Concomitant]
     Active Substance: NITROGLYCERIN
  8. PROTONIX [Concomitant]
     Active Substance: PANTOPRAZOLE SODIUM
  9. COUMADIN [Concomitant]
     Active Substance: WARFARIN SODIUM
  10. SYNTHROID [Concomitant]
     Active Substance: LEVOTHYROXINE SODIUM
  11. SODIUM BICARBONATE. [Concomitant]
     Active Substance: SODIUM BICARBONATE
  12. ECULIZUMAB [Suspect]
     Active Substance: ECULIZUMAB
     Dosage: 900 MG, SINGLE
     Route: 042
     Dates: start: 20130402, end: 20130402
  13. ECULIZUMAB [Suspect]
     Active Substance: ECULIZUMAB
     Dosage: 900 MG, SINGLE
     Route: 042
     Dates: start: 20130417, end: 20130417
  14. MYCOPHENOLATE [Concomitant]
     Active Substance: MYCOPHENOLIC ACID
  15. CYANOCOBALAMIN. [Concomitant]
     Active Substance: CYANOCOBALAMIN
  16. AMOXICILLIN. [Concomitant]
     Active Substance: AMOXICILLIN
  17. LOMOTIL [Concomitant]
     Active Substance: ATROPINE SULFATE\DIPHENOXYLATE HYDROCHLORIDE
  18. METOPROLOL TARTRATE. [Concomitant]
     Active Substance: METOPROLOL TARTRATE
  19. MULTIVITAMIN                       /00097801/ [Concomitant]
     Active Substance: VITAMINS
  20. ECULIZUMAB [Suspect]
     Active Substance: ECULIZUMAB
     Dosage: 900 MG, SINGLE
     Route: 042
     Dates: start: 20130410, end: 20130410
  21. ECULIZUMAB [Suspect]
     Active Substance: ECULIZUMAB
     Dosage: 1200 MG, SINGLE
     Route: 042
     Dates: start: 20130522, end: 20130522
  22. ALBUTEROL                          /00139501/ [Concomitant]
     Active Substance: ALBUTEROL
  23. XANAX [Concomitant]
     Active Substance: ALPRAZOLAM
  24. POLYCARBOPHIL [Concomitant]
     Active Substance: POLYCARBOPHIL
  25. TACROLIMUS. [Concomitant]
     Active Substance: TACROLIMUS
  26. AMIODARONE [Concomitant]
     Active Substance: AMIODARONE
  27. INSULIN ASPART [Concomitant]
     Active Substance: INSULIN ASPART
  28. LASIX [Concomitant]
     Active Substance: FUROSEMIDE
  29. INSULIN GLARGINE [Concomitant]
     Active Substance: INSULIN GLARGINE
  30. NIFEDIPINE. [Concomitant]
     Active Substance: NIFEDIPINE
  31. ECULIZUMAB [Suspect]
     Active Substance: ECULIZUMAB
     Indication: PROPHYLAXIS AGAINST TRANSPLANT REJECTION
     Dosage: 1200 MG, SINGLE
     Route: 042
     Dates: start: 20130319, end: 20130319
  32. ECULIZUMAB [Suspect]
     Active Substance: ECULIZUMAB
     Dosage: 1200 MG, SINGLE
     Route: 042
     Dates: start: 20130424, end: 20130424
  33. VORICONAZOLE. [Concomitant]
     Active Substance: VORICONAZOLE
  34. FERROUS SULFATE [Concomitant]
     Active Substance: FERROUS SULFATE\FERROUS SULFATE, DRIED
  35. LIPITOR [Concomitant]
     Active Substance: ATORVASTATIN CALCIUM

REACTIONS (1)
  - Pneumonia fungal [Not Recovered/Not Resolved]

NARRATIVE: CASE EVENT DATE: 20150216
